FAERS Safety Report 5527200-1 (Version None)
Quarter: 2007Q4

REPORT INFORMATION
  Report Type: 
  Country: None (occurrence: None)
  Receive Date: 20071121
  Receipt Date: 20071109
  Transmission Date: 20080405
  Serious: Yes (Other)
  Sender: FDA-Public Use
  Company Number: PAR_01733_2007

PATIENT
  Sex: Female
  Weight: 90.7194 kg

DRUGS (3)
  1. MEGACE ES [Suspect]
     Indication: ENDOMETRIAL CANCER
     Dosage: (650 MG? BID ORAL)
     Route: 048
     Dates: start: 20070401, end: 20070401
  2. MEGACE ES [Suspect]
     Indication: ENDOMETRIAL CANCER
     Dosage: (625 MG QD ORAL)
     Route: 048
     Dates: start: 20070501
  3. INSULIN [Concomitant]

REACTIONS (8)
  - DIABETES MELLITUS INADEQUATE CONTROL [None]
  - DRY SKIN [None]
  - DYSURIA [None]
  - HEADACHE [None]
  - INCORRECT DOSE ADMINISTERED [None]
  - POLYURIA [None]
  - URINE ODOUR ABNORMAL [None]
  - VISUAL DISTURBANCE [None]
